FAERS Safety Report 7684315-X (Version None)
Quarter: 2011Q3

REPORT INFORMATION
  Report Type: 
  Country: None (occurrence: None)
  Receive Date: 20110815
  Receipt Date: 20110801
  Transmission Date: 20111222
  Serious: No
  Sender: FDA-Public Use
  Company Number: US-B.I. PHARMACEUTICALS,INC./RIDGEFIELD-2011-BP-18990BP

PATIENT
  Age: 53 Year
  Sex: Female

DRUGS (4)
  1. XANAX [Concomitant]
  2. CRESTOR [Concomitant]
  3. PRADAXA [Suspect]
     Dosage: 300 MG
     Dates: start: 20110401
  4. CYMBALTA [Concomitant]

REACTIONS (1)
  - ALOPECIA [None]
